FAERS Safety Report 8401535 (Version 2)
Quarter: 2013Q2

REPORT INFORMATION
  Report Type: Spontaneous
  Country: ZA (occurrence: ZA)
  Receive Date: 20120210
  Receipt Date: 20130415
  Transmission Date: 20140414
  Serious: Yes (Hospitalization, Other)
  Sender: FDA-Public Use
  Company Number: PHHY2012ZA010556

PATIENT
  Age: 64 Year
  Sex: Female

DRUGS (3)
  1. DIOVAN [Suspect]
     Indication: HYPERTENSION
     Dosage: 160 MG, UNK
  2. GLUCOPHAGE [Concomitant]
     Dosage: UNK UKN, UNK
  3. NOVOMIX [Concomitant]
     Dosage: UNK UKN, UNK

REACTIONS (2)
  - Cardiac failure [Unknown]
  - Blood pressure fluctuation [Unknown]
